FAERS Safety Report 7383557-0 (Version None)
Quarter: 2011Q1

REPORT INFORMATION
  Report Type: 
  Country: None (occurrence: None)
  Receive Date: 20110328
  Receipt Date: 20110328
  Transmission Date: 20110831
  Serious: Yes (Hospitalization)
  Sender: FDA-Public Use
  Company Number: None

PATIENT
  Age: 34 Year
  Sex: Male
  Weight: 81 kg

DRUGS (1)
  1. VANCOMYCIN [Suspect]
     Indication: PERIORBITAL CELLULITIS
     Dosage: 1250MG Q8H IV BOLUS
     Route: 040
     Dates: start: 20110303, end: 20110304

REACTIONS (2)
  - RENAL TUBULAR NECROSIS [None]
  - INCORRECT DOSE ADMINISTERED [None]
